FAERS Safety Report 6040087-6 (Version None)
Quarter: 2009Q1

REPORT INFORMATION
  Report Type: 
  Country: None (occurrence: None)
  Receive Date: 20090116
  Receipt Date: 20080110
  Transmission Date: 20090719
  Serious: Yes (Other)
  Sender: FDA-Public Use
  Company Number: US-BRISTOL-MYERS SQUIBB COMPANY-14006852

PATIENT
  Age: 73 Year
  Sex: Male
  Weight: 79 kg

DRUGS (6)
  1. ABILIFY [Suspect]
     Indication: MAJOR DEPRESSION
     Route: 048
     Dates: start: 20051027, end: 20070419
  2. WELLBUTRIN SR [Suspect]
     Dosage: 1 DOSAGE FORM EQUALS 100-200 MG.200MG DOWN TO 100MG
     Route: 048
     Dates: end: 20070516
  3. L-DOPA [Suspect]
     Indication: PARKINSON'S DISEASE
     Dates: end: 20070501
  4. PROZAC [Suspect]
     Route: 048
     Dates: end: 20070516
  5. LIPITOR [Concomitant]
  6. ZETIA [Concomitant]

REACTIONS (6)
  - DYSKINESIA [None]
  - GRIMACING [None]
  - PAIN IN JAW [None]
  - PARKINSON'S DISEASE [None]
  - TARDIVE DYSKINESIA [None]
  - TRISMUS [None]
